FAERS Safety Report 12649649 (Version 1)
Quarter: 2016Q3

REPORT INFORMATION
  Report Type: Spontaneous
  Country: US (occurrence: US)
  Receive Date: 20160812
  Receipt Date: 20160812
  Transmission Date: 20161109
  Serious: Yes (Other)
  Sender: FDA-Public Use
  Company Number: PHHY2016US108712

PATIENT
  Age: 28 Year
  Sex: Male

DRUGS (10)
  1. ZIPRASIDONE. [Suspect]
     Active Substance: ZIPRASIDONE
     Dosage: 40 MG IN MORNING AND 60 MG AT NIGHT
     Route: 065
  2. ZIPRASIDONE. [Suspect]
     Active Substance: ZIPRASIDONE
     Dosage: NIGHT DOSE INCREASED TO 80 MG, QD
     Route: 065
  3. ZIPRASIDONE. [Suspect]
     Active Substance: ZIPRASIDONE
     Dosage: 40 MG TWICE DAILY TO 60 MG TWICE DAILY
     Route: 065
  4. ZIPRASIDONE. [Suspect]
     Active Substance: ZIPRASIDONE
     Dosage: 40 MG, ONLY IN THE MORNING
     Route: 065
  5. ZIPRASIDONE. [Suspect]
     Active Substance: ZIPRASIDONE
     Dosage: 120 UNK, UNK40 MG IN MORNING AND 80 MG AT NIGHT
     Route: 065
  6. QUETIAPINE. [Concomitant]
     Active Substance: QUETIAPINE
     Indication: SCHIZOAFFECTIVE DISORDER
     Dosage: 100 MG, AT NIGHT
     Route: 065
  7. ZIPRASIDONE. [Suspect]
     Active Substance: ZIPRASIDONE
     Dosage: 60 MG, BID
     Route: 065
  8. ZIPRASIDONE. [Suspect]
     Active Substance: ZIPRASIDONE
     Dosage: 40 MG IN MORNING AND 80 MG AT NIGHT
     Route: 065
  9. ZIPRASIDONE. [Suspect]
     Active Substance: ZIPRASIDONE
     Dosage: 40 MG, IN THE MORNING
     Route: 065
  10. ZIPRASIDONE. [Suspect]
     Active Substance: ZIPRASIDONE
     Indication: SCHIZOAFFECTIVE DISORDER
     Dosage: 40 MG, BID
     Route: 065

REACTIONS (2)
  - Sleep-related eating disorder [Recovered/Resolved]
  - Somnambulism [Recovered/Resolved]
